FAERS Safety Report 24558333 (Version 1)
Quarter: 2024Q4

REPORT INFORMATION
  Report Type: Spontaneous
  Country: US (occurrence: US)
  Receive Date: 20241029
  Receipt Date: 20241029
  Transmission Date: 20250114
  Serious: No
  Sender: NOVARTIS
  Company Number: US-SANDOZ-SDZ2024US089681

PATIENT
  Sex: Female

DRUGS (2)
  1. TOBREX [Suspect]
     Active Substance: TOBRAMYCIN
     Indication: Product used for unknown indication
     Dosage: 3 %
     Route: 047
  2. DECADRON (DEXAMETHASONE SODIUM PHOSPHATE) [Suspect]
     Active Substance: DEXAMETHASONE SODIUM PHOSPHATE
     Indication: Product used for unknown indication
     Dosage: 0.1 SUSPENSION, (INJECTION 1.65MG  )
     Route: 047

REACTIONS (4)
  - Hordeolum [Unknown]
  - Abdominal discomfort [Unknown]
  - Dehydration [Unknown]
  - Dry eye [Unknown]
